FAERS Safety Report 23888004 (Version 5)
Quarter: 2024Q3

REPORT INFORMATION
  Report Type: Report from Study
  Country: CA (occurrence: CA)
  Receive Date: 20240523
  Receipt Date: 20240704
  Transmission Date: 20241017
  Serious: Yes (Other)
  Sender: NOVARTIS
  Company Number: CA-002147023-NVSC2024CA108409

PATIENT
  Age: 56 Year
  Sex: Male

DRUGS (2)
  1. COSENTYX [Suspect]
     Active Substance: SECUKINUMAB
     Indication: Psoriasis
     Dosage: 300 MG, QMO
     Route: 058
     Dates: start: 20230831
  2. COSENTYX [Suspect]
     Active Substance: SECUKINUMAB
     Dosage: UNK
     Route: 065
     Dates: start: 20240628

REACTIONS (6)
  - Pneumonia [Unknown]
  - Pulmonary congestion [Recovering/Resolving]
  - Pyrexia [Recovered/Resolved]
  - Cough [Unknown]
  - Infection [Unknown]
  - Lung opacity [Unknown]

NARRATIVE: CASE EVENT DATE: 20240520
